FAERS Safety Report 10655211 (Version 1)
Quarter: 2014Q4

REPORT INFORMATION
  Report Type: Spontaneous
  Country: US (occurrence: None)
  Receive Date: 20141215
  Receipt Date: 20141215
  Transmission Date: 20150529
  Serious: Yes (Other)
  Sender: FDA-Public Use
  Company Number: None

PATIENT
  Age: 60 Year
  Sex: Male
  Weight: 102.06 kg

DRUGS (2)
  1. MORPHINE SULPHATE [Suspect]
     Active Substance: MORPHINE SULFATE
     Indication: PAIN MANAGEMENT
     Dosage: 1 PILL THREE TIMES DAILY
     Route: 048
     Dates: start: 20141110, end: 20141208
  2. MORPHINE SULPHATE [Suspect]
     Active Substance: MORPHINE SULFATE
     Dosage: 1 PILL THREE TIMES DAILY
     Route: 048
     Dates: start: 20141110, end: 20141208

REACTIONS (2)
  - Drug ineffective [None]
  - Product quality issue [None]

NARRATIVE: CASE EVENT DATE: 20141108
